FAERS Safety Report 5063008-1 (Version None)
Quarter: 2006Q3

REPORT INFORMATION
  Report Type: 
  Country: None (occurrence: None)
  Receive Date: 20060724
  Receipt Date: 20060724
  Transmission Date: 20061208
  Serious: Yes (Disabling, Other)
  Sender: FDA-Public Use
  Company Number: None

PATIENT
  Age: 16 Year
  Sex: Female
  Weight: 47.6277 kg

DRUGS (1)
  1. ACYCLOVIR [Suspect]
     Indication: HERPES VIRUS INFECTION
     Dosage: 1  5 TIMES PER DAY PO
     Route: 048
     Dates: start: 20060714, end: 20060722

REACTIONS (5)
  - FATIGUE [None]
  - LYMPHADENOPATHY [None]
  - NAUSEA [None]
  - SWELLING [None]
  - TONSILLAR DISORDER [None]
